FAERS Safety Report 15439002 (Version 1)
Quarter: 2018Q3

REPORT INFORMATION
  Report Type: Spontaneous
  Country: US (occurrence: US)
  Receive Date: 20180924
  Receipt Date: 20180924
  Transmission Date: 20181021
  Serious: Yes (Hospitalization)
  Sender: FDA-Public Use
  Company Number: None

PATIENT
  Age: 71 Year
  Sex: Male
  Weight: 59 kg

DRUGS (1)
  1. PACLITAXEL. [Suspect]
     Active Substance: PACLITAXEL
     Indication: LUNG NEOPLASM MALIGNANT
     Route: 042
     Dates: start: 20180524, end: 20180525

REACTIONS (11)
  - Lower respiratory tract infection viral [None]
  - Tracheostomy malfunction [None]
  - Pneumonitis [None]
  - Lower respiratory tract infection fungal [None]
  - Pleural effusion [None]
  - Tachycardia [None]
  - Pneumocystis jirovecii infection [None]
  - Alveolitis allergic [None]
  - Pulmonary haemorrhage [None]
  - Lung infection [None]
  - Pulmonary oedema [None]

NARRATIVE: CASE EVENT DATE: 20180525
